FAERS Safety Report 14302330 (Version 1)
Quarter: 2017Q4

REPORT INFORMATION
  Report Type: Spontaneous
  Country: US (occurrence: US)
  Receive Date: 20171219
  Receipt Date: 20171219
  Transmission Date: 20180321
  Serious: No
  Sender: FDA-Public Use
  Company Number: US-SUPERNUS PHARMACEUTICALS, INC.-2017SUP00172

PATIENT
  Sex: Male
  Weight: 131.7 kg

DRUGS (7)
  1. TROKENDI XR [Suspect]
     Active Substance: TOPIRAMATE
     Indication: MIGRAINE WITH AURA
     Dosage: 25 MG, 1X/DAY
     Route: 048
     Dates: start: 201705, end: 201705
  2. TROKENDI XR [Suspect]
     Active Substance: TOPIRAMATE
     Indication: MIGRAINE WITH AURA
     Dosage: 50 MG, 1X/DAY
     Route: 048
     Dates: start: 201705, end: 2017
  3. TROKENDI XR [Suspect]
     Active Substance: TOPIRAMATE
     Indication: MIGRAINE WITH AURA
     Dosage: 100 MG, 1X/DAY
     Route: 048
     Dates: start: 2017, end: 201706
  4. TROKENDI XR [Suspect]
     Active Substance: TOPIRAMATE
     Dosage: 25 MG, 1X/DAY
     Route: 048
     Dates: start: 201706
  5. UNKNOWN BLOOD PRESSURE MEDICATION [Concomitant]
     Active Substance: UNSPECIFIED INGREDIENT
     Dosage: UNK
     Dates: start: 2013
  6. UNKNOWN MULTIVITAMIN [Concomitant]
     Active Substance: VITAMINS
  7. TROKENDI XR [Suspect]
     Active Substance: TOPIRAMATE
     Dosage: 50 MG, 1X/DAY
     Dates: start: 201706

REACTIONS (5)
  - Drug ineffective [Unknown]
  - Migraine with aura [Not Recovered/Not Resolved]
  - Hypoaesthesia [Not Recovered/Not Resolved]
  - Paraesthesia [Recovered/Resolved]
  - Tension headache [Recovering/Resolving]

NARRATIVE: CASE EVENT DATE: 2017
